FAERS Safety Report 8886793 (Version 1)
Quarter: 2012Q4

REPORT INFORMATION
  Report Type: 
  Country: KW (occurrence: KW)
  Receive Date: 20121105
  Receipt Date: 20121105
  Transmission Date: 20130627
  Serious: Yes (Death)
  Sender: FDA-Public Use
  Company Number: KW-ABBOTT-12P-091-1003141-00

PATIENT
  Sex: Male

DRUGS (1)
  1. LUPRON [Suspect]
     Indication: PROSTATE CANCER
     Route: 030

REACTIONS (1)
  - Death [Fatal]
